FAERS Safety Report 20160651 (Version 8)
Quarter: 2022Q4

REPORT INFORMATION
  Report Type: Report from Study
  Country: CN (occurrence: None)
  Receive Date: 20211208
  Receipt Date: 20221201
  Transmission Date: 20230112
  Serious: Yes (Hospitalization)
  Sender: FDA-Public Use
  Company Number: CN-ROCHE-2971686

PATIENT
  Age: 60 Year
  Sex: Female
  Weight: 60 kg

DRUGS (9)
  1. PERTUZUMAB [Suspect]
     Active Substance: PERTUZUMAB
     Indication: HER2 positive breast cancer
     Dosage: ON 24/SEP/2021, RECEIVED MOST RECEIVED MOST RECENT DATE 420 MG PRIOR TO AE
     Route: 042
     Dates: start: 20210723
  2. TRASTUZUMAB [Suspect]
     Active Substance: TRASTUZUMAB
     Indication: HER2 positive breast cancer
     Dosage: ON 24/SEP/2021, RECEIVED MOST RECENT DOSE 366 MG PRIOR TO AE
     Route: 041
     Dates: start: 20210723
  3. DOXORUBICIN [Suspect]
     Active Substance: DOXORUBICIN
     Indication: HER2 positive breast cancer
     Dosage: MOST RECENT DOSE 100 MG OF DOXORUBICIN PRIOR TO AE: 02/JUL/2021
     Route: 042
     Dates: start: 20210430
  4. CYCLOPHOSPHAMIDE [Suspect]
     Active Substance: CYCLOPHOSPHAMIDE
     Indication: HER2 positive breast cancer
     Dosage: MOST RECENT DOSE 1000 MG OF CYCLOPHOSPHAMIDE PRIOR TO AE: 02/JUL/2021
     Route: 042
     Dates: start: 20210430
  5. DOCETAXEL [Suspect]
     Active Substance: DOCETAXEL
     Indication: HER2 positive breast cancer
     Dosage: START DATE OF MOST RECENT DOSE OF STUDY DRUG PRIOR TO AE 24/SEP/2021
     Route: 042
     Dates: start: 20210723
  6. MUCOPOLYSACCHARIDE POLYSULFATE [Concomitant]
     Indication: Hypersensitivity
     Route: 061
     Dates: start: 20210728
  7. WUZHI [Concomitant]
     Route: 048
     Dates: start: 20210817, end: 20211013
  8. HERBALS\DIAMMONIUM GLYCYRRHIZINATE [Concomitant]
     Active Substance: HERBALS\DIAMMONIUM GLYCYRRHIZINATE
     Route: 048
     Dates: start: 20210830, end: 20211013
  9. ENTECAVIR [Concomitant]
     Active Substance: ENTECAVIR
     Route: 048
     Dates: start: 20210909, end: 20211013

REACTIONS (1)
  - Hypoalbuminaemia [Recovered/Resolved]

NARRATIVE: CASE EVENT DATE: 20211013
